FAERS Safety Report 5636728-5 (Version None)
Quarter: 2008Q1

REPORT INFORMATION
  Report Type: 
  Country: None (occurrence: None)
  Receive Date: 20080219
  Receipt Date: 20080219
  Transmission Date: 20080703
  Serious: Yes (Life-Threatening, Hospitalization)
  Sender: FDA-Public Use
  Company Number: None

PATIENT
  Age: 70 Year
  Sex: Male
  Weight: 67.1 kg

DRUGS (1)
  1. LISINOPRIL [Suspect]
     Indication: HYPERTENSION
     Dosage: PO
     Route: 048

REACTIONS (4)
  - ANGIOEDEMA [None]
  - DRUG HYPERSENSITIVITY [None]
  - NO THERAPEUTIC RESPONSE [None]
  - SWOLLEN TONGUE [None]
